FAERS Safety Report 4527864-5 (Version None)
Quarter: 2004Q4

REPORT INFORMATION
  Report Type: 
  Country: None (occurrence: None)
  Receive Date: 20041123
  Receipt Date: 20040121
  Transmission Date: 20050328
  Serious: Yes (Disabling)
  Sender: FDA-Public Use
  Company Number: HQWYE530022JAN04

PATIENT
  Sex: Female

DRUGS (1)
  1. ZOSYN [Suspect]
     Indication: SEPSIS

REACTIONS (2)
  - DEAFNESS [None]
  - TINNITUS [None]
